FAERS Safety Report 10164597 (Version 1)
Quarter: 2014Q2

REPORT INFORMATION
  Report Type: Spontaneous
  Country: US (occurrence: US)
  Receive Date: 20140510
  Receipt Date: 20140510
  Transmission Date: 20141212
  Serious: No
  Sender: FDA-Public Use
  Company Number: US-BRISTOL-MYERS SQUIBB COMPANY-19590330

PATIENT
  Sex: Male
  Weight: 99.77 kg

DRUGS (8)
  1. BYDUREON [Suspect]
     Indication: TYPE 2 DIABETES MELLITUS
     Route: 058
     Dates: start: 20131013
  2. BYETTA [Suspect]
  3. METFORMIN [Concomitant]
  4. GLIMEPIRIDE [Concomitant]
  5. ATORVASTATIN [Concomitant]
  6. RAMIPRIL [Concomitant]
  7. ASPIRIN [Concomitant]
  8. FISH OIL [Concomitant]
     Dosage: CAPS

REACTIONS (3)
  - Injection site haemorrhage [Unknown]
  - Injection site pain [Unknown]
  - Weight decreased [Unknown]
